FAERS Safety Report 18927947 (Version 1)
Quarter: 2021Q1

REPORT INFORMATION
  Report Type: Spontaneous
  Country: FR (occurrence: FR)
  Receive Date: 20210223
  Receipt Date: 20210223
  Transmission Date: 20210420
  Serious: Yes (Other)
  Sender: FDA-Public Use
  Company Number: FR-ASTRAZENECA-2021A061277

PATIENT
  Age: 76 Year
  Sex: Female

DRUGS (6)
  1. ACETYLSALICYLATE LYSINE [Suspect]
     Active Substance: ASPIRIN DL-LYSINE
     Dosage: 100 MG
     Route: 065
  2. CLOPIDOGREL BISULFATE. [Suspect]
     Active Substance: CLOPIDOGREL BISULFATE
     Route: 065
  3. INEXIUM [Concomitant]
     Active Substance: ESOMEPRAZOLE
     Route: 065
  4. TAREG [Concomitant]
     Active Substance: VALSARTAN
     Dosage: 160 MG MORNING AND 80MG EVENING, EVERY 12 HOURS
     Route: 065
  5. OMEPRAZOLE. [Suspect]
     Active Substance: OMEPRAZOLE
     Dosage: UNK
     Route: 065
  6. LOXEN [Concomitant]
     Dosage: 50 MG50.0MG UNKNOWN
     Route: 065

REACTIONS (4)
  - Hypertension [Unknown]
  - Unevaluable event [Unknown]
  - Peripheral artery thrombosis [Not Recovered/Not Resolved]
  - Therapeutic product effect incomplete [Unknown]
